FAERS Safety Report 9069082 (Version 2)
Quarter: 2013Q1

REPORT INFORMATION
  Report Type: Spontaneous
  Country: DE (occurrence: DE)
  Receive Date: 20130215
  Receipt Date: 20130315
  Transmission Date: 20140127
  Serious: Yes (Other)
  Sender: FDA-Public Use
  Company Number: DE-CELGENEUS-062-21660-13021181

PATIENT
  Age: 30 Year
  Sex: Female

DRUGS (5)
  1. ABRAXANE [Suspect]
     Indication: BREAST CANCER
     Dosage: 100 OR 150MG/M2
     Route: 065
     Dates: start: 20111208, end: 20120322
  2. HERCEPTIN [Suspect]
     Indication: BREAST CANCER
     Route: 065
     Dates: start: 20111215, end: 20121204
  3. LAPATINIB [Suspect]
     Indication: BREAST CANCER
     Dosage: 750-500MG/ DAY
     Route: 065
     Dates: start: 20111207, end: 20120126
  4. EPIRUBICIN [Suspect]
     Indication: BREAST CANCER
     Route: 065
     Dates: start: 201107, end: 201202
  5. CYCLOPHOSPHAMIDE [Suspect]
     Indication: BREAST CANCER
     Route: 065
     Dates: start: 201107, end: 201202

REACTIONS (11)
  - Palmar-plantar erythrodysaesthesia syndrome [Recovered/Resolved]
  - Leukopenia [Unknown]
  - Anaemia [Unknown]
  - Neuropathy peripheral [Recovered/Resolved]
  - Hypermetropia [None]
  - Fatigue [None]
  - Mucosal inflammation [None]
  - Nausea [None]
  - Skin disorder [None]
  - Polyneuropathy [None]
  - Platelet count increased [None]
